FAERS Safety Report 8491125-2 (Version None)
Quarter: 2012Q3

REPORT INFORMATION
  Report Type: 
  Country: None (occurrence: None)
  Receive Date: 20120706
  Receipt Date: 20120628
  Transmission Date: 20120928
  Serious: Yes (Hospitalization)
  Sender: FDA-Public Use
  Company Number: US-BAYER-2012-064880

PATIENT
  Age: 31 Year
  Sex: Female

DRUGS (6)
  1. TESSALON [Concomitant]
  2. BACTRIM [Concomitant]
     Indication: SINUSITIS
  3. BACTRIM [Concomitant]
     Indication: BRONCHITIS
  4. GUAIFENESIN [Concomitant]
  5. SERZONE [Concomitant]
  6. YASMIN [Suspect]

REACTIONS (1)
  - DEEP VEIN THROMBOSIS [None]
